FAERS Safety Report 18007342 (Version 1)
Quarter: 2020Q3

REPORT INFORMATION
  Report Type: Spontaneous
  Country: US (occurrence: US)
  Receive Date: 20200710
  Receipt Date: 20200710
  Transmission Date: 20201103
  Serious: No
  Sender: FDA-Public Use
  Company Number: None

PATIENT
  Age: 57 Year
  Weight: 90 kg

DRUGS (2)
  1. LEVOTHYROXIN [Concomitant]
     Active Substance: LEVOTHYROXINE
  2. BLUMEN CLEAR ADVANCED HAND SANITIZER [Suspect]
     Active Substance: ALCOHOL
     Indication: COVID-19 PROPHYLAXIS
     Dates: start: 20200707, end: 20200709

REACTIONS (8)
  - Malaise [None]
  - Headache [None]
  - Tinnitus [None]
  - Dizziness [None]
  - Chemical poisoning [None]
  - Renal disorder [None]
  - Blood methanol [None]
  - Recalled product administered [None]

NARRATIVE: CASE EVENT DATE: 20200707
